FAERS Safety Report 8780052 (Version 1)
Quarter: 2012Q4

REPORT INFORMATION
  Report Type: 
  Country: US (occurrence: US)
  Receive Date: 20120912
  Receipt Date: 20120912
  Transmission Date: 20130627
  Serious: Yes (Death)
  Sender: FDA-Public Use
  Company Number: US-MYLANLABS-2012S1018186

PATIENT
  Age: 38 Year
  Sex: Male

DRUGS (9)
  1. PREDNISONE [Suspect]
     Indication: PEMPHIGUS
     Dosage: 15 mg/d
     Route: 065
  2. PREDNISONE [Suspect]
     Indication: PEMPHIGUS
     Dosage: 120 mg/d
     Route: 065
  3. AZATHIOPRINE [Suspect]
     Indication: PEMPHIGUS
     Dosage: 50 mg/d
     Route: 065
  4. CIPROFLOXACIN [Concomitant]
     Indication: FURUNCLE
     Route: 065
  5. BACITRACIN [Concomitant]
     Indication: FURUNCLE
     Route: 061
  6. ACICLOVIR [Concomitant]
     Indication: HERPES VIRUS INFECTION
     Route: 061
  7. OXACILLIN [Concomitant]
     Indication: CELLULITIS
     Route: 065
  8. INSULIN [Concomitant]
     Indication: DIABETES MELLITUS
     Route: 065
  9. NYSTATIN [Concomitant]
     Indication: CANDIDIASIS
     Route: 061

REACTIONS (3)
  - Varicella [Fatal]
  - Alpha-1 anti-trypsin abnormal [Fatal]
  - Disseminated intravascular coagulation [Fatal]
